FAERS Safety Report 9349713 (Version 2)
Quarter: 2013Q3

REPORT INFORMATION
  Report Type: Spontaneous
  Country: TW (occurrence: TW)
  Receive Date: 20130614
  Receipt Date: 20130813
  Transmission Date: 20140515
  Serious: Yes (Hospitalization)
  Sender: FDA-Public Use
  Company Number: TW-ABBOTT-13P-153-1105022-00

PATIENT
  Age: 77 Year
  Sex: Female
  Weight: 37.1 kg

DRUGS (5)
  1. HUMIRA [Suspect]
     Indication: RHEUMATOID ARTHRITIS
     Route: 058
     Dates: start: 20110609, end: 20130529
  2. HUMIRA [Suspect]
     Route: 058
     Dates: start: 20130624
  3. MTX [Suspect]
     Indication: PRODUCT USED FOR UNKNOWN INDICATION
     Dosage: #6
     Route: 048
     Dates: start: 20101124
  4. SSZ [Concomitant]
     Indication: PRODUCT USED FOR UNKNOWN INDICATION
     Route: 048
     Dates: start: 20100127
  5. QUENIL [Concomitant]
     Indication: PRODUCT USED FOR UNKNOWN INDICATION
     Route: 048
     Dates: start: 20100127

REACTIONS (5)
  - Aphthous stomatitis [Recovering/Resolving]
  - Ulcer haemorrhage [Recovering/Resolving]
  - Hypophagia [Unknown]
  - Weight decreased [Unknown]
  - Dyspnoea [Unknown]
